FAERS Safety Report 17971101 (Version 1)
Quarter: 2020Q3

REPORT INFORMATION
  Report Type: Spontaneous
  Country: DE (occurrence: DE)
  Receive Date: 20200701
  Receipt Date: 20200701
  Transmission Date: 20201103
  Serious: Yes (Other)
  Sender: FDA-Public Use
  Company Number: DE-MYLANLABS-2020M1059506

PATIENT
  Age: 11 Year
  Sex: Male

DRUGS (9)
  1. CALCIUM [Concomitant]
     Active Substance: CALCIUM
     Indication: ADDISON^S DISEASE
  2. HYDROCORTISONE. [Interacting]
     Active Substance: HYDROCORTISONE
     Indication: HYPOPARATHYROIDISM
  3. HYDROCORTISONE. [Suspect]
     Active Substance: HYDROCORTISONE
     Indication: ADDISON^S DISEASE
     Dosage: 15 MG/M2, DAILY
  4. CALCIUM [Concomitant]
     Active Substance: CALCIUM
     Indication: HYPOPARATHYROIDISM
     Dosage: UNK
  5. FLUDROCORTISONE [Concomitant]
     Active Substance: FLUDROCORTISONE
     Indication: ADDISON^S DISEASE
  6. LIQUORICE                          /01125801/ [Interacting]
     Active Substance: GLYCYRRHIZA GLABRA
     Indication: ADDISON^S DISEASE
     Dosage: UNK (300?400 G) (APPROXIMATELY 600?800 MG GLYCYRRHIZIC ACID)
  7. FLUDROCORTISONE [Concomitant]
     Active Substance: FLUDROCORTISONE
     Indication: HYPOPARATHYROIDISM
     Dosage: 0.1 MG, DAILY
  8. CALCITRIOL. [Concomitant]
     Active Substance: CALCITRIOL
     Indication: ADDISON^S DISEASE
     Dosage: UNK
  9. CALCITRIOL. [Concomitant]
     Active Substance: CALCITRIOL
     Indication: HYPOPARATHYROIDISM

REACTIONS (3)
  - Drug interaction [Unknown]
  - Apparent mineralocorticoid excess [Recovered/Resolved]
  - Growth retardation [Recovering/Resolving]
